FAERS Safety Report 7536128-7 (Version None)
Quarter: 2011Q2

REPORT INFORMATION
  Report Type: 
  Country: None (occurrence: None)
  Receive Date: 20110608
  Receipt Date: 20110608
  Transmission Date: 20111010
  Serious: Yes (Other)
  Sender: FDA-Public Use
  Company Number: None

PATIENT
  Sex: Female

DRUGS (2)
  1. BUPIVACAINE HCL [Suspect]
     Indication: SPINAL ANAESTHESIA
     Dates: start: 20110301, end: 20110531
  2. PENCAN SPINAL TRAY BRAUN [Suspect]

REACTIONS (1)
  - DRUG INEFFECTIVE [None]
